FAERS Safety Report 18960308 (Version 1)
Quarter: 2021Q1

REPORT INFORMATION
  Report Type: Spontaneous
  Country: US (occurrence: US)
  Receive Date: 20210303
  Receipt Date: 20210303
  Transmission Date: 20210420
  Serious: Yes (Other)
  Sender: FDA-Public Use
  Company Number: US-HIKMA PHARMACEUTICALS USA INC.-US-H14001-21-53746

PATIENT
  Age: 5 Decade
  Sex: Female

DRUGS (3)
  1. NARATRIPTAN [Suspect]
     Active Substance: NARATRIPTAN HYDROCHLORIDE
     Indication: MIGRAINE
     Dosage: TOOK TWICE THE AMOUNT OF HER PRESCRIBED DOSAGE
     Route: 065
  2. NARATRIPTAN [Suspect]
     Active Substance: NARATRIPTAN HYDROCHLORIDE
     Indication: MIGRAINE WITHOUT AURA
     Dosage: TOOK ANOTHER DOSE
     Route: 065
  3. NARATRIPTAN [Suspect]
     Active Substance: NARATRIPTAN HYDROCHLORIDE
     Route: 065

REACTIONS (4)
  - Urinary retention [Recovered/Resolved]
  - Chest pain [Recovered/Resolved]
  - Spinal cord infarction [Recovered/Resolved]
  - Intentional overdose [Recovered/Resolved]
